FAERS Safety Report 9677774 (Version 2)
Quarter: 2013Q4

REPORT INFORMATION
  Report Type: Report from Study
  Country: CA (occurrence: CA)
  Receive Date: 20131108
  Receipt Date: 20131108
  Transmission Date: 20140711
  Serious: Yes (Other)
  Sender: FDA-Public Use
  Company Number: CA-ABBVIE-12P-028-0961578-00

PATIENT
  Sex: Male

DRUGS (1)
  1. HUMIRA 40 MG/ 0.8 ML PRE-FILLED SYRINGE [Suspect]
     Indication: PSORIASIS
     Route: 058
     Dates: start: 20111116

REACTIONS (12)
  - Soft tissue mass [Not Recovered/Not Resolved]
  - Lymphoma [Not Recovered/Not Resolved]
  - Pleural effusion [Unknown]
  - Retroperitoneal mass [Not Recovered/Not Resolved]
  - Metastasis [Not Recovered/Not Resolved]
  - Chest pain [Unknown]
  - Joint range of motion decreased [Unknown]
  - Arthralgia [Unknown]
  - Synovial cyst [Unknown]
  - Osteosclerosis [Unknown]
  - Bone cancer metastatic [Unknown]
  - Atelectasis [Unknown]
